FAERS Safety Report 13314262 (Version 1)
Quarter: 2017Q1

REPORT INFORMATION
  Report Type: Spontaneous
  Country: SI (occurrence: SI)
  Receive Date: 20170309
  Receipt Date: 20170309
  Transmission Date: 20170428
  Serious: Yes (Other)
  Sender: FDA-Public Use
  Company Number: SI-BAYER-2017-024410

PATIENT
  Age: 66 Year
  Sex: Male

DRUGS (1)
  1. STIVARGA [Suspect]
     Active Substance: REGORAFENIB
     Indication: RECTAL CANCER METASTATIC
     Dosage: DAILY DOSE 120 MG
     Dates: start: 20141120, end: 20150219

REACTIONS (6)
  - Rectal cancer stage IV [None]
  - Weight decreased [None]
  - Metastases to liver [None]
  - Hypertension [None]
  - Fatigue [None]
  - Blood creatinine increased [None]

NARRATIVE: CASE EVENT DATE: 20150316
